FAERS Safety Report 6120944-2 (Version None)
Quarter: 2009Q1

REPORT INFORMATION
  Report Type: 
  Country: None (occurrence: None)
  Receive Date: 20090312
  Receipt Date: 20090312
  Transmission Date: 20090719
  Serious: Yes (Other)
  Sender: FDA-Public Use
  Company Number: None

PATIENT
  Age: 53 Year
  Sex: Female
  Weight: 82.1011 kg

DRUGS (2)
  1. SINGULAIR [Suspect]
     Indication: ASTHMA
     Dosage: 1 DAILY PO
     Route: 048
     Dates: start: 20000110, end: 20090309
  2. SINGULAIR [Suspect]
     Indication: LATEX ALLERGY
     Dosage: 1 DAILY PO
     Route: 048
     Dates: start: 20000110, end: 20090309

REACTIONS (2)
  - ADVERSE DRUG REACTION [None]
  - MALAISE [None]
